FAERS Safety Report 23461135 (Version 2)
Quarter: 2024Q2

REPORT INFORMATION
  Report Type: Spontaneous
  Country: US (occurrence: US)
  Receive Date: 20240131
  Receipt Date: 20240422
  Transmission Date: 20240716
  Serious: No
  Sender: FDA-Public Use
  Company Number: US-SA-SAC20240127000315

PATIENT
  Sex: Female

DRUGS (7)
  1. DUPIXENT [Suspect]
     Active Substance: DUPILUMAB
     Indication: Asthma
     Dosage: 200 MG, QOW
     Route: 058
  2. FARXIGA [Concomitant]
     Active Substance: DAPAGLIFLOZIN PROPANEDIOL
     Dosage: UNK
  3. FUROSEMIDE [Concomitant]
     Active Substance: FUROSEMIDE
     Dosage: UNK
  4. LATANOPROST [Concomitant]
     Active Substance: LATANOPROST
     Dosage: UNK
  5. LOSARTAN POTASSIUM [Concomitant]
     Active Substance: LOSARTAN POTASSIUM
     Dosage: UNK
  6. NOVOLOG [Concomitant]
     Active Substance: INSULIN ASPART
     Dosage: UNK
  7. TRESIBA [Concomitant]
     Active Substance: INSULIN DEGLUDEC
     Dosage: UNK

REACTIONS (4)
  - Vomiting [Unknown]
  - Diarrhoea [Unknown]
  - Gastroenteritis viral [Unknown]
  - Arthralgia [Not Recovered/Not Resolved]
